FAERS Safety Report 24196139 (Version 1)
Quarter: 2024Q3

REPORT INFORMATION
  Report Type: Spontaneous
  Country: AU (occurrence: AU)
  Receive Date: 20240809
  Receipt Date: 20240809
  Transmission Date: 20241017
  Serious: Yes (Other)
  Sender: PURDUE
  Company Number: AU-PURDUE PHARMA-USA-2024-0311245

PATIENT
  Age: 6 Decade
  Sex: Male

DRUGS (3)
  1. OXYCODONE HYDROCHLORIDE [Suspect]
     Active Substance: OXYCODONE HYDROCHLORIDE
     Indication: Product used for unknown indication
     Dosage: 5 MILLIGRAM AS NEEDED
     Route: 065
  2. NALOXONE HYDROCHLORIDE\OXYCODONE HYDROCHLORIDE [Suspect]
     Active Substance: NALOXONE HYDROCHLORIDE\OXYCODONE HYDROCHLORIDE
     Indication: Product used for unknown indication
     Dosage: 5-10 MG
     Route: 065
  3. IPILIMUMAB;NIVOLUMAB [Concomitant]
     Indication: Metastatic malignant melanoma
     Dosage: UNK
     Route: 065

REACTIONS (2)
  - Immune-mediated enterocolitis [Recovered/Resolved]
  - Constipation [Recovered/Resolved]
